FAERS Safety Report 11092515 (Version 2)
Quarter: 2015Q3

REPORT INFORMATION
  Report Type: Report from Study
  Country: DE (occurrence: DE)
  Receive Date: 20150506
  Receipt Date: 20150713
  Transmission Date: 20151125
  Serious: Yes (Hospitalization)
  Sender: FDA-Public Use
  Company Number: DE-BIOGENIDEC-2015BI054332

PATIENT
  Age: 43 Year
  Sex: Female
  Weight: 130 kg

DRUGS (5)
  1. TYSABRI [Suspect]
     Active Substance: NATALIZUMAB
     Indication: MULTIPLE SCLEROSIS
     Route: 042
     Dates: start: 20090701, end: 20140630
  2. PROPIVERINE [Concomitant]
     Active Substance: PROPIVERINE
     Indication: URINARY INCONTINENCE
     Dates: start: 201208
  3. DULOXETINE. [Concomitant]
     Active Substance: DULOXETINE
     Indication: DEPRESSION
     Dates: start: 201208
  4. PREGABALIN. [Concomitant]
     Active Substance: PREGABALIN
     Indication: MUSCLE SPASTICITY
     Dates: start: 201208
  5. TYSABRI [Suspect]
     Active Substance: NATALIZUMAB
     Indication: MULTIPLE SCLEROSIS
     Route: 042

REACTIONS (1)
  - Cubital tunnel syndrome [Recovered/Resolved]

NARRATIVE: CASE EVENT DATE: 20150323
